FAERS Safety Report 15284602 (Version 4)
Quarter: 2019Q2

REPORT INFORMATION
  Report Type: Report from Study
  Country: MX (occurrence: MX)
  Receive Date: 20180816
  Receipt Date: 20190619
  Transmission Date: 20190711
  Serious: Yes (Hospitalization, Other)
  Sender: FDA-Public Use
  Company Number: MX-BAYER-2018-097260

PATIENT
  Age: 66 Year
  Sex: Female
  Weight: 64.5 kg

DRUGS (14)
  1. LOPERAMIDE [Suspect]
     Active Substance: LOPERAMIDE
  2. OMEPRAZOLE. [Concomitant]
     Active Substance: OMEPRAZOLE
     Dosage: UNK
  3. LOPERAMIDE [Concomitant]
     Active Substance: LOPERAMIDE
     Dosage: UNK
  4. BUTILHIOSCINA [Concomitant]
  5. NEXAVAR [Suspect]
     Active Substance: SORAFENIB
     Indication: HEPATOCELLULAR CARCINOMA
     Dosage: 200 MG, BID
     Dates: start: 20151101, end: 20180620
  6. METOCLOPRAMIDE. [Concomitant]
     Active Substance: METOCLOPRAMIDE
     Dosage: UNK
  7. NEXAVAR [Suspect]
     Active Substance: SORAFENIB
     Indication: HEPATOCELLULAR CARCINOMA
     Dosage: 800 MG DAILY
     Dates: start: 2018, end: 2018
  8. NEXAVAR [Suspect]
     Active Substance: SORAFENIB
     Indication: HEPATOCELLULAR CARCINOMA
     Dosage: 800 MG DAILY
  9. NEXAVAR [Suspect]
     Active Substance: SORAFENIB
     Indication: HEPATOCELLULAR CARCINOMA
     Dosage: DAILY DOSE 400 MG
  10. BUTILHIOSCINA [Concomitant]
     Dosage: UNK
  11. PROPANOLOL [PROPRANOLOL] [Concomitant]
     Active Substance: PROPRANOLOL HYDROCHLORIDE
     Dosage: UNK
  12. NEXAVAR [Suspect]
     Active Substance: SORAFENIB
     Indication: HEPATOCELLULAR CARCINOMA
     Dosage: DOSE REDUCED
     Route: 048
     Dates: start: 2018
  13. COMPLEX B [VITAMIN B COMPLEX] [Concomitant]
     Dosage: UNK
  14. NEXAVAR [Suspect]
     Active Substance: SORAFENIB
     Indication: HEPATOCELLULAR CARCINOMA
     Dosage: 200 MG, BID
     Route: 048
     Dates: start: 2018, end: 2018

REACTIONS (33)
  - Hepatocellular carcinoma [None]
  - Hospitalisation [None]
  - Haematemesis [Not Recovered/Not Resolved]
  - Haematochezia [Unknown]
  - Muscle spasms [Not Recovered/Not Resolved]
  - Toothache [Not Recovered/Not Resolved]
  - Diarrhoea [Recovered/Resolved with Sequelae]
  - Anaemia [None]
  - Depression [Not Recovered/Not Resolved]
  - Faeces discoloured [Unknown]
  - Varices oesophageal [None]
  - Haematemesis [None]
  - Anaemia [Not Recovered/Not Resolved]
  - Discoloured vomit [None]
  - Off label use [Not Recovered/Not Resolved]
  - Faeces discoloured [Not Recovered/Not Resolved]
  - Mouth haemorrhage [Not Recovered/Not Resolved]
  - Faeces discoloured [None]
  - Nausea [Not Recovered/Not Resolved]
  - Constipation [None]
  - Faeces discoloured [None]
  - Varices oesophageal [Not Recovered/Not Resolved]
  - Intra-abdominal fluid collection [Not Recovered/Not Resolved]
  - Depressed mood [Not Recovered/Not Resolved]
  - Abdominal pain upper [None]
  - Vomiting [Not Recovered/Not Resolved]
  - Oesophageal varices haemorrhage [Not Recovered/Not Resolved]
  - Diarrhoea [Recovered/Resolved with Sequelae]
  - Headache [Not Recovered/Not Resolved]
  - Abdominal pain upper [Not Recovered/Not Resolved]
  - Intra-abdominal fluid collection [None]
  - Decreased appetite [None]
  - Diarrhoea [None]

NARRATIVE: CASE EVENT DATE: 20151101
